FAERS Safety Report 14895204 (Version 1)
Quarter: 2018Q2

REPORT INFORMATION
  Report Type: Spontaneous
  Country: US (occurrence: US)
  Receive Date: 20180427
  Receipt Date: 20180427
  Transmission Date: 20180711
  Serious: Yes (Other)
  Sender: FDA-Public Use
  Company Number: None

PATIENT
  Age: 39 Year
  Sex: Female
  Weight: 85.5 kg

DRUGS (5)
  1. HERPECIN L [Suspect]
     Active Substance: DIMETHICONE\MERADIMATE\OCTINOXATE\OCTISALATE\OXYBENZONE
     Indication: ORAL HERPES
     Dosage: ?          OTHER STRENGTH:SPF;QUANTITY:1 LIP BALM;?
     Route: 061
     Dates: start: 20180425, end: 20180425
  2. ZOLPIDEM TARTRATE. [Concomitant]
     Active Substance: ZOLPIDEM TARTRATE
  3. SERTRALINE HCL [Concomitant]
     Active Substance: SERTRALINE HYDROCHLORIDE
  4. NATURE^S BOUNTY D3 [Concomitant]
  5. ATORVASTATIN [Concomitant]
     Active Substance: ATORVASTATIN

REACTIONS (5)
  - Hypoaesthesia [None]
  - Pruritus [None]
  - Swelling [None]
  - Rash [None]
  - Lymphadenopathy [None]

NARRATIVE: CASE EVENT DATE: 20180425
